FAERS Safety Report 16453802 (Version 1)
Quarter: 2019Q2

REPORT INFORMATION
  Report Type: Report from Study
  Country: RU (occurrence: RU)
  Receive Date: 20190619
  Receipt Date: 20190619
  Transmission Date: 20190711
  Serious: Yes (Other)
  Sender: FDA-Public Use
  Company Number: RU-ASTRAZENECA-2019SE87379

PATIENT
  Age: 63 Year
  Sex: Female
  Weight: 116 kg

DRUGS (2)
  1. INSULIN [Concomitant]
     Active Substance: INSULIN NOS
  2. FORXIGA [Suspect]
     Active Substance: DAPAGLIFLOZIN
     Indication: TYPE 2 DIABETES MELLITUS
     Route: 048
     Dates: start: 201906

REACTIONS (1)
  - Blood pressure increased [Not Recovered/Not Resolved]
